FAERS Safety Report 25820431 (Version 2)
Quarter: 2025Q4

REPORT INFORMATION
  Report Type: Spontaneous
  Country: US (occurrence: US)
  Receive Date: 20250919
  Receipt Date: 20251002
  Transmission Date: 20260119
  Serious: Yes (Other)
  Sender: AUROBINDO
  Company Number: US-AUROBINDO-AUR-APL-2025-046878

PATIENT
  Age: 78 Year
  Sex: Female

DRUGS (4)
  1. CARBOPLATIN [Suspect]
     Active Substance: CARBOPLATIN
     Indication: Neuroendocrine tumour of the lung
     Dosage: UNK UNK, CYCLICAL
     Route: 065
     Dates: start: 2024
  2. ETOPOSIDE [Suspect]
     Active Substance: ETOPOSIDE
     Indication: Neuroendocrine tumour of the lung
     Dosage: UNK UNK, CYCLICAL
     Route: 065
     Dates: start: 2024
  3. ATEZOLIZUMAB [Suspect]
     Active Substance: ATEZOLIZUMAB
     Indication: Neuroendocrine tumour of the lung
     Dosage: UNK UNK, CYCLICAL
     Route: 065
     Dates: start: 2024
  4. TARLATAMAB [Concomitant]
     Active Substance: TARLATAMAB
     Indication: Neuroendocrine tumour of the lung
     Dosage: 1 MILLIGRAM
     Route: 065
     Dates: start: 202411

REACTIONS (1)
  - Drug ineffective [Unknown]
